FAERS Safety Report 16087377 (Version 1)
Quarter: 2019Q1

REPORT INFORMATION
  Report Type: Spontaneous
  Country: US (occurrence: US)
  Receive Date: 20190319
  Receipt Date: 20190319
  Transmission Date: 20190418
  Serious: No
  Sender: FDA-Public Use
  Company Number: US-GLAXOSMITHKLINE-US2019047761

PATIENT
  Sex: Male

DRUGS (2)
  1. DICLOFENAC TABLET [Suspect]
     Active Substance: DICLOFENAC
     Indication: PAIN
     Dosage: 75 MG, QD
     Route: 048
  2. DICLOFENAC TABLET [Suspect]
     Active Substance: DICLOFENAC
     Dosage: 100 MG, QD
     Route: 048

REACTIONS (1)
  - Pain [Unknown]

NARRATIVE: CASE EVENT DATE: 201902
